FAERS Safety Report 5437378-6 (Version None)
Quarter: 2007Q3

REPORT INFORMATION
  Report Type: 
  Country: None (occurrence: None)
  Receive Date: 20070831
  Receipt Date: 20051114
  Transmission Date: 20080115
  Serious: Yes (Disabling)
  Sender: FDA-Public Use
  Company Number: AU-MERCK-0510AUS00146

PATIENT
  Age: 72 Year
  Sex: Female
  Weight: 90 kg

DRUGS (15)
  1. ZETIA [Suspect]
     Indication: HYPERLIPIDAEMIA
     Route: 048
     Dates: start: 20050601
  2. ZETIA [Suspect]
     Route: 048
     Dates: start: 20050801
  3. ZETIA [Suspect]
     Route: 048
     Dates: start: 20050901
  4. ZETIA [Suspect]
     Indication: METABOLIC DISORDER
     Route: 048
     Dates: start: 20050601
  5. ZETIA [Suspect]
     Route: 048
     Dates: start: 20050801
  6. ZETIA [Suspect]
     Route: 048
     Dates: start: 20050901
  7. ASPIRIN [Concomitant]
     Route: 065
  8. FOSINOPRIL SODIUM [Concomitant]
     Route: 065
  9. DILTIAZEM HYDROCHLORIDE [Concomitant]
     Route: 065
  10. ATENOLOL [Concomitant]
     Route: 065
  11. AMLODIPINE BESYLATE [Concomitant]
     Route: 065
  12. OXAZEPAM [Concomitant]
     Route: 065
  13. INSULIN, NEUTRAL [Concomitant]
     Route: 065
  14. NITROFURANTOIN [Concomitant]
     Route: 065
  15. INSULIN HUMAN, ISOPHANE [Concomitant]
     Route: 065

REACTIONS (3)
  - DEPRESSION [None]
  - HEADACHE [None]
  - SUICIDAL IDEATION [None]
